FAERS Safety Report 8521342 (Version 5)
Quarter: 2014Q1

REPORT INFORMATION
  Report Type: Spontaneous
  Country: BR (occurrence: BR)
  Receive Date: 20120419
  Receipt Date: 20140204
  Transmission Date: 20141002
  Serious: Yes (Hospitalization, Other)
  Sender: FDA-Public Use
  Company Number: BR-PFIZER INC-2012023153

PATIENT
  Age: 59 Year
  Sex: Female
  Weight: 72 kg

DRUGS (2)
  1. SUTENT [Suspect]
     Indication: PANCREATIC NEUROENDOCRINE TUMOUR
     Dosage: 1 CAPSULE (25 MG), CYCLIC, ONCE A DAY
     Route: 048
     Dates: start: 20111229
  2. SUTENT [Suspect]
     Indication: NEUROENDOCRINE TUMOUR

REACTIONS (15)
  - Cholecystitis infective [Unknown]
  - Nephrolithiasis [Unknown]
  - Renal impairment [Recovering/Resolving]
  - Hepatic function abnormal [Recovering/Resolving]
  - Septic shock [Unknown]
  - Blood creatinine increased [Unknown]
  - Tumour haemorrhage [Unknown]
  - Lung disorder [Recovering/Resolving]
  - Hypertension [Unknown]
  - Oral pain [Not Recovered/Not Resolved]
  - Ageusia [Not Recovered/Not Resolved]
  - Dysphagia [Not Recovered/Not Resolved]
  - Gingival bleeding [Not Recovered/Not Resolved]
  - Toxicity to various agents [Unknown]
  - Diarrhoea [Recovered/Resolved]
